FAERS Safety Report 16169741 (Version 1)
Quarter: 2019Q2

REPORT INFORMATION
  Report Type: Spontaneous
  Country: US (occurrence: US)
  Receive Date: 20190407
  Receipt Date: 20190407
  Transmission Date: 20190711
  Serious: No
  Sender: FDA-Public Use
  Company Number: None

PATIENT
  Age: 7 Year
  Sex: Male
  Weight: 19.35 kg

DRUGS (2)
  1. OSELTAMIVIR GENERIC FOR TAMIFLU [Suspect]
     Active Substance: OSELTAMIVIR
     Indication: INFLUENZA
     Dosage: 6 MG/ML SUSPENSION???          QUANTITY:7.5 TEASPOON(S);?
     Route: 048
     Dates: start: 20190404, end: 20190407
  2. METHYLPHENIDATE. [Concomitant]
     Active Substance: METHYLPHENIDATE

REACTIONS (2)
  - Gait inability [None]
  - Gait disturbance [None]

NARRATIVE: CASE EVENT DATE: 20190407
